FAERS Safety Report 16926042 (Version 1)
Quarter: 2019Q4

REPORT INFORMATION
  Report Type: Spontaneous
  Country: US (occurrence: US)
  Receive Date: 20191016
  Receipt Date: 20191016
  Transmission Date: 20200122
  Serious: Yes (Other)
  Sender: FDA-Public Use
  Company Number: None

PATIENT
  Age: 89 Year
  Sex: Female
  Weight: 53.37 kg

DRUGS (1)
  1. JADENU [Suspect]
     Active Substance: DEFERASIROX
     Indication: MYELODYSPLASTIC SYNDROME
     Route: 048
     Dates: start: 20181023, end: 20191016

REACTIONS (2)
  - Acute kidney injury [None]
  - Therapy cessation [None]

NARRATIVE: CASE EVENT DATE: 20191016
